FAERS Safety Report 19144188 (Version 3)
Quarter: 2022Q3

REPORT INFORMATION
  Report Type: Report from Study
  Country: US (occurrence: None)
  Receive Date: 20210416
  Receipt Date: 20220915
  Transmission Date: 20221027
  Serious: Yes (Other)
  Sender: FDA-Public Use
  Company Number: US-MERCK HEALTHCARE KGAA-9231425

PATIENT
  Age: 58 Year
  Sex: Male

DRUGS (1)
  1. REBIF [Suspect]
     Active Substance: INTERFERON BETA-1A
     Indication: Multiple sclerosis
     Dosage: REBIF PREFILLED SYRINGE
     Route: 058
     Dates: start: 20060120

REACTIONS (5)
  - Colon cancer recurrent [Unknown]
  - Colostomy [Recovered/Resolved]
  - Rectal cancer [Recovered/Resolved]
  - Thyroid cancer [Recovered/Resolved]
  - Post procedural diarrhoea [Unknown]

NARRATIVE: CASE EVENT DATE: 20190101
